FAERS Safety Report 7579644-4 (Version None)
Quarter: 2011Q2

REPORT INFORMATION
  Report Type: 
  Country: None (occurrence: None)
  Receive Date: 20110629
  Receipt Date: 20110616
  Transmission Date: 20111010
  Serious: Yes (Other)
  Sender: FDA-Public Use
  Company Number: DE-CELGENEUS-062-21880-11062275

PATIENT
  Age: 65 Year
  Sex: Male
  Weight: 70 kg

DRUGS (3)
  1. DEXAMETHASONE [Concomitant]
     Dosage: 20 MILLIGRAM
     Route: 065
     Dates: start: 20110610, end: 20110611
  2. REVLIMID [Suspect]
     Indication: MULTIPLE MYELOMA
     Dosage: 10 MILLIGRAM
     Route: 048
     Dates: start: 20110610, end: 20110611
  3. ENOXAPARIN SODIUM [Concomitant]
     Dosage: 60 MILLIGRAM
     Route: 065

REACTIONS (4)
  - CARDIAC FAILURE [None]
  - PSYCHOTIC DISORDER [None]
  - THROMBOCYTOPENIA [None]
  - LUNG INFILTRATION [None]
